FAERS Safety Report 6326780-6 (Version None)
Quarter: 2009Q3

REPORT INFORMATION
  Report Type: 
  Country: None (occurrence: None)
  Receive Date: 20090825
  Receipt Date: 20090824
  Transmission Date: 20100115
  Serious: Yes (Death, Hospitalization)
  Sender: FDA-Public Use
  Company Number: JP-PFIZER INC-2009217014

PATIENT
  Age: 77 Year

DRUGS (11)
  1. METHYLPREDNISOLONE AND METHYLPREDNISOLONE ACETATE AND METHYLPREDNISOLO [Suspect]
     Indication: MICROSCOPIC POLYANGIITIS
     Dosage: 1 G, UNK
  2. METHYLPREDNISOLONE AND METHYLPREDNISOLONE ACETATE AND METHYLPREDNISOLO [Suspect]
     Indication: PULMONARY ALVEOLAR HAEMORRHAGE
  3. PREDNISOLONE AND PREDNISOLONE STEAGLATE [Suspect]
     Indication: MICROSCOPIC POLYANGIITIS
     Dosage: 1 MG/KG, 1X/DAY
     Route: 048
  4. PREDNISOLONE AND PREDNISOLONE STEAGLATE [Suspect]
     Indication: PULMONARY ALVEOLAR HAEMORRHAGE
  5. SULFAMETHOXAZOLE AND TRIMETHOPRIM [Concomitant]
     Route: 048
  6. ISONIAZID [Concomitant]
     Route: 048
  7. RABEPRAZOLE SODIUM [Concomitant]
     Route: 048
  8. FUROSEMIDE [Concomitant]
     Route: 048
  9. PYRIDOXAL PHOSPHATE [Concomitant]
     Route: 048
  10. FERROUS CITRATE [Concomitant]
     Route: 048
  11. INSULIN [Concomitant]
     Route: 058

REACTIONS (1)
  - BRONCHOPULMONARY ASPERGILLOSIS [None]
